FAERS Safety Report 7755103-0 (Version None)
Quarter: 2011Q3

REPORT INFORMATION
  Report Type: 
  Country: None (occurrence: None)
  Receive Date: 20110916
  Receipt Date: 20110908
  Transmission Date: 20111222
  Serious: No
  Sender: FDA-Public Use
  Company Number: US-PFIZER INC-2011212403

PATIENT
  Sex: Female
  Weight: 69.388 kg

DRUGS (5)
  1. AMOXICILLIN [Interacting]
     Indication: IMMUNODEFICIENCY
     Dosage: UNK
  2. PREVACID [Concomitant]
     Dosage: UNK
  3. ARTHROTEC [Interacting]
     Indication: PAIN
     Dosage: 50 MG, 3X/DAY
     Route: 048
     Dates: start: 20110907, end: 20110908
  4. MELOXICAM [Suspect]
     Dosage: UNK
  5. BENICAR HCT [Concomitant]
     Indication: HYPERTENSION
     Dosage: UNK
     Route: 048

REACTIONS (3)
  - NAUSEA [None]
  - DIARRHOEA [None]
  - DRUG INTERACTION [None]
